FAERS Safety Report 5059702-9 (Version None)
Quarter: 2006Q3

REPORT INFORMATION
  Report Type: 
  Country: None (occurrence: None)
  Receive Date: 20060724
  Receipt Date: 20060710
  Transmission Date: 20061208
  Serious: Yes (Hospitalization)
  Sender: FDA-Public Use
  Company Number: PR-ROCHE-454811

PATIENT
  Age: 65 Year
  Sex: Female
  Weight: 64.3 kg

DRUGS (9)
  1. PEG-INTERFERON ALFA 2A (RO 25-8310) [Suspect]
     Route: 058
     Dates: start: 20060530
  2. RIBAVIRIN [Suspect]
     Route: 048
     Dates: start: 20060602, end: 20060613
  3. RIBAVIRIN [Suspect]
     Route: 048
     Dates: start: 20060618
  4. ALEVE (CAPLET) [Concomitant]
     Dates: start: 20060412
  5. SINGULAIR [Concomitant]
     Dates: start: 20060527
  6. NEXIUM [Concomitant]
     Dates: start: 20060527
  7. PULMICORT [Concomitant]
     Dates: start: 20060527, end: 20060613
  8. GILTUSS [Concomitant]
     Dates: start: 20060527, end: 20060613
  9. CELESTONE [Concomitant]
     Dates: start: 20060527, end: 20060613

REACTIONS (1)
  - BRONCHITIS [None]
